FAERS Safety Report 5405255-2 (Version None)
Quarter: 2007Q3

REPORT INFORMATION
  Report Type: 
  Country: None (occurrence: None)
  Receive Date: 20070803
  Receipt Date: 20070802
  Transmission Date: 20080115
  Serious: Yes (Hospitalization)
  Sender: FDA-Public Use
  Company Number: AU-BRISTOL-MYERS SQUIBB COMPANY-13865456

PATIENT
  Age: 63 Year
  Sex: Female

DRUGS (11)
  1. AVAPRO [Suspect]
  2. MOBIC [Suspect]
  3. ARAVA [Suspect]
     Indication: RHEUMATOID ARTHRITIS
     Route: 048
     Dates: start: 20050214
  4. ZOCOR [Concomitant]
  5. ZINC [Concomitant]
  6. RABEPRAZOLE SODIUM [Concomitant]
  7. IRON [Concomitant]
  8. PROTHIADEN [Concomitant]
  9. PSYLLIUM HYDROPHILIC MUCILLOID [Concomitant]
  10. SALAZOPYRIN [Concomitant]
  11. METHOTREXATE [Concomitant]

REACTIONS (4)
  - ANAEMIA [None]
  - DIARRHOEA [None]
  - PAIN IN EXTREMITY [None]
  - VIRAL INFECTION [None]
